FAERS Safety Report 10628925 (Version 1)
Quarter: 2014Q4

REPORT INFORMATION
  Report Type: Spontaneous
  Country: US (occurrence: US)
  Receive Date: 20141205
  Receipt Date: 20141205
  Transmission Date: 20150529
  Serious: No
  Sender: FDA-Public Use
  Company Number: US-BRISTOL-MYERS SQUIBB COMPANY-21548078

PATIENT
  Age: 60 Year
  Sex: Female

DRUGS (11)
  1. LIDOCAINE. [Suspect]
     Active Substance: LIDOCAINE
     Indication: OSTEOARTHRITIS
  2. OMEPRAZOLE. [Concomitant]
     Active Substance: OMEPRAZOLE
  3. KENALOG-40 [Suspect]
     Active Substance: TRIAMCINOLONE ACETONIDE
     Indication: ARTHRALGIA
     Dosage: 40GM=1ML.
  4. KENALOG-40 [Suspect]
     Active Substance: TRIAMCINOLONE ACETONIDE
     Indication: OSTEOARTHRITIS
     Dosage: 40GM=1ML.
  5. LIDOCAINE. [Suspect]
     Active Substance: LIDOCAINE
     Indication: PERIPHERAL SWELLING
  6. VALIUM [Concomitant]
     Active Substance: DIAZEPAM
  7. CLONIDINE. [Concomitant]
     Active Substance: CLONIDINE
  8. VALTREX [Concomitant]
     Active Substance: VALACYCLOVIR HYDROCHLORIDE
  9. LIDOCAINE. [Suspect]
     Active Substance: LIDOCAINE
     Indication: ARTHRALGIA
  10. KENALOG-40 [Suspect]
     Active Substance: TRIAMCINOLONE ACETONIDE
     Indication: PERIPHERAL SWELLING
     Dosage: 40GM=1ML.
  11. VOLTAREN [Concomitant]
     Active Substance: DICLOFENAC SODIUM

REACTIONS (2)
  - Skin atrophy [Unknown]
  - Skin depigmentation [Unknown]

NARRATIVE: CASE EVENT DATE: 2014
